FAERS Safety Report 23780049 (Version 1)
Quarter: 2024Q2

REPORT INFORMATION
  Report Type: Other
  Country: JP (occurrence: JP)
  Receive Date: 20240424
  Receipt Date: 20240424
  Transmission Date: 20240715
  Serious: Yes (Other)
  Sender: FDA-Public Use
  Company Number: JP-Orbicular Pharamceutical Technologies Pvt Ltd-2155971

PATIENT
  Age: 53 Year
  Sex: Male

DRUGS (2)
  1. ARSENIC TRIOXIDE [Suspect]
     Active Substance: ARSENIC TRIOXIDE
     Indication: Acute promyelocytic leukaemia
     Route: 065
  2. TRETINOIN [Concomitant]
     Active Substance: TRETINOIN
     Route: 065

REACTIONS (1)
  - Pericarditis [Recovered/Resolved]
